FAERS Safety Report 5178314-X (Version None)
Quarter: 2006Q4

REPORT INFORMATION
  Report Type: 
  Country: None (occurrence: None)
  Receive Date: 20061218
  Receipt Date: 20060825
  Transmission Date: 20070319
  Serious: No
  Sender: FDA-Public Use
  Company Number: US-AMGEN-KDL191345

PATIENT
  Sex: Male

DRUGS (1)
  1. ENBREL [Suspect]
     Indication: RHEUMATOID ARTHRITIS
     Route: 058
     Dates: start: 20031111

REACTIONS (4)
  - ABDOMINAL PAIN [None]
  - BACK PAIN [None]
  - PANCREATITIS ACUTE [None]
  - WEIGHT DECREASED [None]
